FAERS Safety Report 9398656 (Version 2)
Quarter: 2015Q4

REPORT INFORMATION
  Report Type: Spontaneous
  Country: CA (occurrence: CA)
  Receive Date: 20130712
  Receipt Date: 20151030
  Transmission Date: 20160305
  Serious: Yes (Hospitalization, Congenital Anomaly, Other)
  Sender: FDA-Public Use
  Company Number: CA-RB-055945-13

PATIENT
  Age: 0 Year
  Sex: Female
  Weight: 3.49 kg

DRUGS (9)
  1. SUBOXONE [Suspect]
     Active Substance: BUPRENORPHINE HYDROCHLORIDE\NALOXONE HYDROCHLORIDE
     Dosage: UNK
     Route: 063
     Dates: start: 201303
  2. SUBUTEX [Suspect]
     Active Substance: BUPRENORPHINE HYDROCHLORIDE
     Indication: DRUG DEPENDENCE
     Dosage: 16 MG, DAILY
     Route: 064
     Dates: start: 201208
  3. NICOTINE. [Suspect]
     Active Substance: NICOTINE
     Indication: PRODUCT USED FOR UNKNOWN INDICATION
     Dosage: 15 CIGARETTES DAILY
     Route: 064
     Dates: end: 20130319
  4. TYLENOL [Suspect]
     Active Substance: ACETAMINOPHEN
     Indication: PRODUCT USED FOR UNKNOWN INDICATION
     Dosage: DOSAGE DETAILS NOT PROVIDED
     Route: 064
  5. SUBUTEX [Suspect]
     Active Substance: BUPRENORPHINE HYDROCHLORIDE
     Dosage: 24 MG, DAILY
     Route: 064
     Dates: start: 20120911, end: 20130319
  6. FOLIC ACID. [Suspect]
     Active Substance: FOLIC ACID
     Indication: PRODUCT USED FOR UNKNOWN INDICATION
     Dosage: DOSAGE DETAILS NOT PROVIDED
     Route: 064
  7. NICOTINE. [Suspect]
     Active Substance: NICOTINE
     Dosage: 15 CIGARETTES DAILY
     Route: 063
     Dates: start: 201303
  8. SUBUTEX [Suspect]
     Active Substance: BUPRENORPHINE HYDROCHLORIDE
     Dosage: 24MG, DAILY
     Route: 063
     Dates: start: 201303, end: 20130325
  9. SUBOXONE [Suspect]
     Active Substance: BUPRENORPHINE HYDROCHLORIDE\NALOXONE HYDROCHLORIDE
     Indication: DRUG DEPENDENCE
     Dosage: UNK
     Route: 064
     Dates: start: 201206, end: 201208

REACTIONS (4)
  - Exposure during breast feeding [Unknown]
  - Foetal exposure during pregnancy [Recovered/Resolved]
  - Drug withdrawal syndrome neonatal [Recovered/Resolved]
  - Developmental hip dysplasia [Not Recovered/Not Resolved]

NARRATIVE: CASE EVENT DATE: 201206
